FAERS Safety Report 4425129-3 (Version None)
Quarter: 2004Q3

REPORT INFORMATION
  Report Type: 
  Country: None (occurrence: None)
  Receive Date: 20040810
  Receipt Date: 20040728
  Transmission Date: 20050211
  Serious: Yes (Other)
  Sender: FDA-Public Use
  Company Number: 2004051327

PATIENT
  Age: 50 Year
  Sex: Male
  Weight: 81.6475 kg

DRUGS (3)
  1. VIAGRA [Suspect]
     Indication: ERECTILE DYSFUNCTION
     Dosage: 100 MG (100 MG, AS NEEDED), ORAL
     Route: 048
     Dates: start: 20040101
  2. ASPIRIN [Concomitant]
  3. RANITIDINE HYDROCHLORIDE [Concomitant]

REACTIONS (9)
  - BLADDER DISORDER [None]
  - DRUG EFFECT DECREASED [None]
  - HEADACHE [None]
  - NEPHROLITHIASIS [None]
  - PHOTOPHOBIA [None]
  - POLLAKIURIA [None]
  - SCAR EXCISION [None]
  - URINARY RETENTION [None]
  - VISUAL FIELD DEFECT [None]
